FAERS Safety Report 20944964 (Version 1)
Quarter: 2022Q2

REPORT INFORMATION
  Report Type: Spontaneous
  Country: US (occurrence: None)
  Receive Date: 20220609
  Receipt Date: 20220609
  Transmission Date: 20220721
  Serious: Yes (Hospitalization)
  Sender: FDA-Public Use
  Company Number: None

PATIENT
  Sex: Female

DRUGS (1)
  1. IBRANCE [Suspect]
     Active Substance: PALBOCICLIB
     Indication: Breast cancer
     Dosage: TAKE ONE CAPSULE BY MOUTH DAILY WITH FOOD FOR 21 DAYS OF A 28 DAY CYCLE. ;
     Route: 048
     Dates: start: 202204

REACTIONS (1)
  - Laryngeal cleft [None]
